FAERS Safety Report 10677577 (Version 1)
Quarter: 2014Q4

REPORT INFORMATION
  Report Type: Spontaneous
  Country: US (occurrence: US)
  Receive Date: 20141228
  Receipt Date: 20141228
  Transmission Date: 20150529
  Serious: No
  Sender: FDA-Public Use
  Company Number: US-BAUSCH-SYM-2014-17065

PATIENT
  Age: 49 Year
  Sex: Female

DRUGS (4)
  1. ZOLOFT [Suspect]
     Active Substance: SERTRALINE HYDROCHLORIDE
     Indication: DEPRESSION
     Route: 048
  2. VALIUM [Suspect]
     Active Substance: DIAZEPAM
     Indication: ANXIETY
     Route: 048
  3. XENAZINE [Suspect]
     Active Substance: TETRABENAZINE
     Indication: HUNTINGTON^S DISEASE
     Dosage: 1 TABLET, TWICE DAILY
     Route: 048
     Dates: start: 20140131
  4. XENAZINE [Suspect]
     Active Substance: TETRABENAZINE
     Dosage: 1 TABLET, 3 TIMES DAILY
     Route: 048

REACTIONS (8)
  - Anxiety [Not Recovered/Not Resolved]
  - Fatigue [Unknown]
  - Dysarthria [Not Recovered/Not Resolved]
  - Balance disorder [Unknown]
  - Depression [Not Recovered/Not Resolved]
  - Clumsiness [Unknown]
  - Restlessness [Unknown]
  - Somnolence [Unknown]

NARRATIVE: CASE EVENT DATE: 20140131
